FAERS Safety Report 23229849 (Version 1)
Quarter: 2023Q4

REPORT INFORMATION
  Report Type: Spontaneous
  Country: US (occurrence: None)
  Receive Date: 20231127
  Receipt Date: 20231127
  Transmission Date: 20240110
  Serious: No
  Sender: FDA-Public Use
  Company Number: US-ROCHE-3395011

PATIENT
  Sex: Female
  Weight: 63.56 kg

DRUGS (1)
  1. LUCENTIS [Suspect]
     Active Substance: RANIBIZUMAB
     Indication: Dry age-related macular degeneration
     Route: 065
     Dates: start: 2019

REACTIONS (4)
  - Incorrect dose administered [Unknown]
  - Headache [Unknown]
  - Intentional product use issue [Unknown]
  - Eye pain [Unknown]
